FAERS Safety Report 8817116 (Version 1)
Quarter: 2012Q4

REPORT INFORMATION
  Report Type: Spontaneous
  Country: None (occurrence: None)
  Receive Date: 20121002
  Receipt Date: 20121002
  Transmission Date: 20130627
  Serious: Yes (Other)
  Sender: FDA-Public Use
  Company Number: AUR-APL-2012-04203

PATIENT
  Age: 65 Year
  Sex: Female

DRUGS (1)
  1. METFORMIN (METFORMIN) [Suspect]
     Indication: DIABETES MELLITUS
     Dosage: one tablet in the morning and one in the evening (2 dosage forms)
     Dates: start: 2007

REACTIONS (6)
  - Arthralgia [None]
  - Tremor [None]
  - Blood glucose abnormal [None]
  - Pain in extremity [None]
  - Musculoskeletal stiffness [None]
  - Tonsillar hypertrophy [None]
